FAERS Safety Report 9415298 (Version 2)
Quarter: 2014Q1

REPORT INFORMATION
  Report Type: Spontaneous
  Country: FR (occurrence: FR)
  Receive Date: 20130723
  Receipt Date: 20140110
  Transmission Date: 20141002
  Serious: Yes (Hospitalization)
  Sender: FDA-Public Use
  Company Number: FR-BRISTOL-MYERS SQUIBB COMPANY-19127133

PATIENT
  Age: 79 Year
  Sex: Male

DRUGS (10)
  1. COUMADINE [Suspect]
     Dosage: PRODUCT STRENGTH IS 2MG?DOSAGE 2.25 UNITS NOT SPECIFIED
     Route: 048
  2. MICROLAX [Concomitant]
  3. LANTUS [Concomitant]
  4. SODIUM CITRATE [Concomitant]
  5. AMIODARONE [Concomitant]
  6. MOVICOL [Concomitant]
  7. BISOPROLOL [Concomitant]
  8. ESOMEPRAZOLE [Concomitant]
  9. NOVORAPID [Concomitant]
  10. TARDYFERON [Concomitant]

REACTIONS (2)
  - Gastrointestinal haemorrhage [Not Recovered/Not Resolved]
  - Anaemia [Not Recovered/Not Resolved]
